FAERS Safety Report 9172413 (Version 1)
Quarter: 2013Q1

REPORT INFORMATION
  Report Type: Spontaneous
  Country: IT (occurrence: IT)
  Receive Date: 20130319
  Receipt Date: 20130319
  Transmission Date: 20140127
  Serious: Yes (Hospitalization)
  Sender: FDA-Public Use
  Company Number: IT-TEVA-391746ISR

PATIENT
  Age: 76 Year
  Sex: Female

DRUGS (8)
  1. IBUPROFEN [Suspect]
     Indication: INFLUENZA
     Route: 048
     Dates: start: 20130107
  2. UNSPECIFIED ANTIBIOTIC [Concomitant]
     Indication: INFLUENZA
  3. ALLOPURINOLO TEVA ITALIA [Concomitant]
  4. IDROQUARK [Concomitant]
     Dosage: RAMIPRIL 5 MG/HYDROCHLOROTIAZIDE 25 MG
  5. HUMALOG [Concomitant]
  6. LANTUS [Concomitant]
  7. ARMILLA [Concomitant]
     Dosage: 400 IU
  8. ZANEDIP [Concomitant]

REACTIONS (3)
  - Rash vesicular [Recovering/Resolving]
  - Erythema [Recovering/Resolving]
  - Face oedema [Recovering/Resolving]
